FAERS Safety Report 4273721-1 (Version None)
Quarter: 2004Q1

REPORT INFORMATION
  Report Type: 
  Country: None (occurrence: None)
  Receive Date: 20040116
  Receipt Date: 20040116
  Transmission Date: 20041129
  Serious: Yes (Other)
  Sender: FDA-Public Use
  Company Number: None

PATIENT
  Age: 50 Year
  Sex: Male
  Weight: 74 kg

DRUGS (2)
  1. CPT-11 (IRINOTECAN) [Suspect]
     Indication: METASTASES TO CENTRAL NERVOUS SYSTEM
     Dosage: 350 MG/M2 CYCLE 7
     Dates: start: 20031030
  2. CPT-11 (IRINOTECAN) [Suspect]
     Indication: NON-SMALL CELL LUNG CANCER
     Dosage: 350 MG/M2 CYCLE 7
     Dates: start: 20031030

REACTIONS (4)
  - CEREBRAL DISORDER [None]
  - DISEASE PROGRESSION [None]
  - METASTATIC NEOPLASM [None]
  - PLEURAL EFFUSION [None]
